FAERS Safety Report 8966232 (Version 1)
Quarter: 2012Q4

REPORT INFORMATION
  Report Type: Spontaneous
  Country: US (occurrence: None)
  Receive Date: 20121204
  Receipt Date: 20121204
  Transmission Date: 20130627
  Serious: Yes (Hospitalization)
  Sender: FDA-Public Use
  Company Number: KV201200232

PATIENT
  Age: 38 Year
  Sex: Female

DRUGS (1)
  1. MAKENA [Suspect]
     Indication: PREMATURE DELIVERY
     Dosage: 250 mg,  Once weekly,  Intramuscular
     Route: 030
     Dates: start: 20121102

REACTIONS (2)
  - Uterine contractions during pregnancy [None]
  - Exposure during pregnancy [None]
